FAERS Safety Report 9879457 (Version 2)
Quarter: 2014Q2

REPORT INFORMATION
  Report Type: Spontaneous
  Country: US (occurrence: US)
  Receive Date: 20140206
  Receipt Date: 20140626
  Transmission Date: 20141212
  Serious: Yes (Other)
  Sender: FDA-Public Use
  Company Number: US-AMGEN-USASP2014006734

PATIENT
  Age: 68 Year
  Sex: Female
  Weight: 49.4 kg

DRUGS (9)
  1. PROLIA [Suspect]
     Indication: OSTEOPOROSIS
     Dosage: UNK
     Route: 065
     Dates: start: 2012
  2. PAXIL                              /00500401/ [Concomitant]
     Route: 065
  3. MATRIX                             /00109201/ [Concomitant]
     Route: 065
  4. NYSTATIN [Concomitant]
     Route: 065
  5. ESTRADIOL [Concomitant]
     Route: 065
  6. MIRALAX                            /00754501/ [Concomitant]
     Route: 065
  7. VITAMIN D3 [Concomitant]
     Route: 065
  8. CALCIUM CITRATE [Concomitant]
     Route: 065
  9. DIFLUCAN [Concomitant]
     Route: 065

REACTIONS (17)
  - Osteonecrosis [Unknown]
  - Middle ear effusion [Unknown]
  - Cataract [Unknown]
  - Stomatitis [Unknown]
  - Fall [Unknown]
  - Balance disorder [Unknown]
  - Oral pain [Unknown]
  - Ear pain [Unknown]
  - Asthenia [Unknown]
  - Corrective lens user [Unknown]
  - Toothache [Unknown]
  - Micturition urgency [Unknown]
  - Claustrophobia [Unknown]
  - Coordination abnormal [Unknown]
  - Hypoaesthesia [Unknown]
  - Paraesthesia [Unknown]
  - Muscle spasms [Unknown]
